FAERS Safety Report 6607713-1 (Version None)
Quarter: 2010Q1

REPORT INFORMATION
  Report Type: 
  Country: None (occurrence: None)
  Receive Date: 20100301
  Receipt Date: 20100219
  Transmission Date: 20100710
  Serious: Yes (Hospitalization)
  Sender: FDA-Public Use
  Company Number: CHPA2010US03468

PATIENT
  Age: 57 Year
  Sex: Female
  Weight: 106.58 kg

DRUGS (5)
  1. VOLTAREN [Suspect]
     Indication: OSTEOARTHRITIS
     Dosage: UNK, UNK
     Route: 061
     Dates: start: 20100101
  2. PRAVASTATIN SODIUM [Suspect]
  3. PERCOCET [Suspect]
     Dosage: 2 DF, TID
     Route: 048
  4. DETROL                                  /USA/ [Suspect]
     Indication: BLADDER DISORDER
  5. VALIUM [Suspect]
     Indication: SLEEP DISORDER

REACTIONS (6)
  - ALANINE AMINOTRANSFERASE INCREASED [None]
  - ASPARTATE AMINOTRANSFERASE INCREASED [None]
  - BLOOD ALKALINE PHOSPHATASE INCREASED [None]
  - BLOOD GLUCOSE DECREASED [None]
  - HEPATIC ENZYME INCREASED [None]
  - HYPOGLYCAEMIA [None]
